FAERS Safety Report 4342905-6 (Version None)
Quarter: 2004Q2

REPORT INFORMATION
  Report Type: 
  Country: None (occurrence: None)
  Receive Date: 20040416
  Receipt Date: 20040407
  Transmission Date: 20050107
  Serious: Yes (Hospitalization, Other)
  Sender: FDA-Public Use
  Company Number: 2004208334SE

PATIENT
  Age: 75 Year
  Sex: Male

DRUGS (5)
  1. CLINDAMYCIN [Suspect]
     Indication: INFECTION
     Dates: start: 20031001, end: 20031001
  2. CARBAMZEPINE (CARBAMAZEPINE) [Suspect]
     Indication: EPILEPSY
     Dates: start: 20030901, end: 20031101
  3. PIVMECILLINAM (PIVMECILLINAM) [Suspect]
     Indication: INFECTION
     Dates: start: 20031010, end: 20031011
  4. CEFUROXIME [Suspect]
     Indication: INFECTION
     Dates: start: 20031001, end: 20031001
  5. ERYTHROMYCIN [Suspect]
     Indication: INFECTION
     Dates: start: 20031011, end: 20031016

REACTIONS (13)
  - ATRIOVENTRICULAR BLOCK COMPLETE [None]
  - ENDOCARDITIS [None]
  - FATIGUE [None]
  - HYPERSENSITIVITY [None]
  - IMPLANT SITE REACTION [None]
  - PETIT MAL EPILEPSY [None]
  - RASH [None]
  - RENAL INFARCT [None]
  - SHOCK [None]
  - SPLENIC ABSCESS [None]
  - SPLENOMEGALY [None]
  - STAPHYLOCOCCAL INFECTION [None]
  - URINARY TRACT INFECTION [None]
